FAERS Safety Report 18622436 (Version 7)
Quarter: 2025Q1

REPORT INFORMATION
  Report Type: Report from Study
  Country: US (occurrence: US)
  Receive Date: 20201216
  Receipt Date: 20250327
  Transmission Date: 20250409
  Serious: Yes (Other)
  Sender: TAKEDA
  Company Number: US-TAKEDA-US202032828

PATIENT
  Age: 60 Year
  Sex: Female

DRUGS (3)
  1. HUMAN IMMUNOGLOBULIN G [Suspect]
     Active Substance: HUMAN IMMUNOGLOBULIN G
     Indication: Primary immunodeficiency syndrome
  2. HUMAN IMMUNOGLOBULIN G [Suspect]
     Active Substance: HUMAN IMMUNOGLOBULIN G
     Indication: Hypogammaglobulinaemia
  3. Covid-19 vaccine [Concomitant]

REACTIONS (14)
  - Type 2 diabetes mellitus [Unknown]
  - Basal cell carcinoma [Unknown]
  - Eye disorder [Unknown]
  - Post herpetic neuralgia [Unknown]
  - Headache [Unknown]
  - Neuralgia [Unknown]
  - Eyelid ptosis [Unknown]
  - Trigeminal nerve disorder [Unknown]
  - Scar [Recovering/Resolving]
  - Viral infection [Unknown]
  - Intervertebral disc protrusion [Unknown]
  - Gait disturbance [Unknown]
  - Swelling face [Unknown]
  - Cough [Recovering/Resolving]

NARRATIVE: CASE EVENT DATE: 20190801
